FAERS Safety Report 24124428 (Version 1)
Quarter: 2024Q3

REPORT INFORMATION
  Report Type: Report from Study
  Country: US (occurrence: None)
  Receive Date: 20240723
  Receipt Date: 20240723
  Transmission Date: 20241017
  Serious: Yes (Other)
  Sender: ASTRAZENECA
  Company Number: 2020SF32016

PATIENT
  Sex: Female

DRUGS (2)
  1. LYNPARZA [Suspect]
     Active Substance: OLAPARIB
     Indication: Genital neoplasm malignant female
     Route: 048
  2. LASIX [Concomitant]
     Active Substance: FUROSEMIDE

REACTIONS (9)
  - Peripheral artery thrombosis [Unknown]
  - Full blood count decreased [Unknown]
  - Peripheral swelling [Unknown]
  - Fatigue [Unknown]
  - Memory impairment [Unknown]
  - Dry mouth [Unknown]
  - Constipation [Unknown]
  - Abnormal dreams [Unknown]
  - Somnambulism [Unknown]
